FAERS Safety Report 21670854 (Version 2)
Quarter: 2022Q4

REPORT INFORMATION
  Report Type: Spontaneous
  Country: TW (occurrence: TW)
  Receive Date: 20221202
  Receipt Date: 20221208
  Transmission Date: 20230113
  Serious: Yes (Death, Life-Threatening, Hospitalization, Other)
  Sender: FDA-Public Use
  Company Number: None

PATIENT
  Age: 42 Year
  Sex: Male
  Weight: 83 kg

DRUGS (25)
  1. DICLOFENAC [Suspect]
     Active Substance: DICLOFENAC
     Indication: Muscular weakness
     Dosage: UNK
     Route: 048
  2. DICLOFENAC [Suspect]
     Active Substance: DICLOFENAC
     Indication: Oropharyngeal pain
  3. DICLOFENAC [Suspect]
     Active Substance: DICLOFENAC
     Indication: Pyrexia
  4. DICLOFENAC [Suspect]
     Active Substance: DICLOFENAC
     Indication: Malaise
  5. MYCOPHENOLATE MOFETIL [Suspect]
     Active Substance: MYCOPHENOLATE MOFETIL
     Indication: Vanishing bile duct syndrome
     Dosage: 250 MILLIGRAM, BID; CAPSULE
     Route: 048
  6. MYCOPHENOLATE MOFETIL [Suspect]
     Active Substance: MYCOPHENOLATE MOFETIL
     Dosage: 750 MILLIGRAM, BID; CAPSULE
     Route: 048
  7. MYCOPHENOLATE MOFETIL [Suspect]
     Active Substance: MYCOPHENOLATE MOFETIL
     Dosage: UNK; (INTRAVENOUS AND ORAL FORMS WERE GIVEN)
     Route: 065
  8. MEFENAMIC ACID [Suspect]
     Active Substance: MEFENAMIC ACID
     Indication: Pyrexia
     Dosage: UNK
     Route: 048
  9. MEFENAMIC ACID [Suspect]
     Active Substance: MEFENAMIC ACID
     Indication: Muscular weakness
  10. MEFENAMIC ACID [Suspect]
     Active Substance: MEFENAMIC ACID
     Indication: Oropharyngeal pain
  11. MEFENAMIC ACID [Suspect]
     Active Substance: MEFENAMIC ACID
     Indication: Malaise
  12. HYDROCORTISONE [Suspect]
     Active Substance: HYDROCORTISONE
     Indication: Vanishing bile duct syndrome
     Dosage: UNK; (INTRAVENOUS AND ORAL FORMS WERE GIVEN)
     Route: 065
  13. HYDROCORTISONE [Suspect]
     Active Substance: HYDROCORTISONE
     Indication: Stevens-Johnson syndrome
  14. PREDNISOLONE [Suspect]
     Active Substance: PREDNISOLONE
     Indication: Vanishing bile duct syndrome
     Dosage: UNK; (INTRAVENOUS AND ORAL FORMS WERE GIVEN)
     Route: 065
  15. PREDNISOLONE [Suspect]
     Active Substance: PREDNISOLONE
     Indication: Stevens-Johnson syndrome
  16. METHYLPREDNISOLONE [Suspect]
     Active Substance: METHYLPREDNISOLONE
     Indication: Stevens-Johnson syndrome
     Dosage: UNK; (DOSE EQUIVALENT TO 1.2?2.6 MG/KG OF PREDNISONE PER DAY)
     Route: 042
  17. METHYLPREDNISOLONE [Suspect]
     Active Substance: METHYLPREDNISOLONE
     Indication: Vanishing bile duct syndrome
     Dosage: UNK; (DOSE EQUIVALENT OF 2.6 MG/KG OF PREDNISONE PER DAY)
     Route: 042
  18. ACETAMINOPHEN [Suspect]
     Active Substance: ACETAMINOPHEN
     Indication: Muscular weakness
     Dosage: UNK
     Route: 065
  19. ACETAMINOPHEN [Suspect]
     Active Substance: ACETAMINOPHEN
     Indication: Oropharyngeal pain
  20. ACETAMINOPHEN [Suspect]
     Active Substance: ACETAMINOPHEN
     Indication: Malaise
  21. ACETAMINOPHEN [Suspect]
     Active Substance: ACETAMINOPHEN
     Indication: Pyrexia
  22. FAMOTIDINE [Suspect]
     Active Substance: FAMOTIDINE
     Indication: Muscular weakness
     Dosage: UNK
     Route: 048
  23. FAMOTIDINE [Suspect]
     Active Substance: FAMOTIDINE
     Indication: Pyrexia
  24. FAMOTIDINE [Suspect]
     Active Substance: FAMOTIDINE
     Indication: Malaise
  25. FAMOTIDINE [Suspect]
     Active Substance: FAMOTIDINE
     Indication: Oropharyngeal pain

REACTIONS (12)
  - Hypovolaemic shock [Fatal]
  - Septic shock [Fatal]
  - General physical health deterioration [Fatal]
  - Cytomegalovirus infection [Fatal]
  - Colitis [Fatal]
  - Impaired healing [Fatal]
  - Haemorrhage [Fatal]
  - Vanishing bile duct syndrome [Recovered/Resolved]
  - Haemophagocytic lymphohistiocytosis [Recovered/Resolved]
  - Stevens-Johnson syndrome [Recovered/Resolved]
  - Drug ineffective [Unknown]
  - Off label use [Unknown]
